FAERS Safety Report 5478925-8 (Version None)
Quarter: 2007Q4

REPORT INFORMATION
  Report Type: 
  Country: None (occurrence: None)
  Receive Date: 20071002
  Receipt Date: 20070917
  Transmission Date: 20080405
  Serious: Yes (Hospitalization, Other)
  Sender: FDA-Public Use
  Company Number: 2007BI016419

PATIENT
  Age: 58 Year
  Sex: Female
  Weight: 103.4201 kg

DRUGS (9)
  1. NATALIZUMAB [Suspect]
     Indication: MULTIPLE SCLEROSIS
     Dosage: 300 MG; QM; IV
     Route: 042
     Dates: start: 20070509, end: 20070801
  2. ZANTAC [Concomitant]
  3. WELLBUTRIN [Concomitant]
  4. M.V.I. [Concomitant]
  5. HEPARIN [Concomitant]
  6. ALPRAZOLAM [Concomitant]
  7. ESTRIOL OIL [Concomitant]
  8. HOMEOPATHIC REMEDIES [Concomitant]
  9. BLACK CURRENT OIL [Concomitant]

REACTIONS (27)
  - ARTHRALGIA [None]
  - BLOOD LACTATE DEHYDROGENASE INCREASED [None]
  - CERVICAL SPINAL STENOSIS [None]
  - CHEST DISCOMFORT [None]
  - CHEST PAIN [None]
  - COLD SWEAT [None]
  - DEPRESSION [None]
  - DIARRHOEA [None]
  - DISTURBANCE IN ATTENTION [None]
  - ELECTROCARDIOGRAM POOR R-WAVE PROGRESSION [None]
  - FATIGUE [None]
  - HEADACHE [None]
  - HYPERHIDROSIS [None]
  - HYPOAESTHESIA [None]
  - IDIOPATHIC THROMBOCYTOPENIC PURPURA [None]
  - INFUSION RELATED REACTION [None]
  - NAUSEA [None]
  - PRURITUS [None]
  - RASH GENERALISED [None]
  - RED CELL DISTRIBUTION WIDTH INCREASED [None]
  - SERUM FERRITIN INCREASED [None]
  - SLEEP APNOEA SYNDROME [None]
  - SOMNOLENCE [None]
  - URTICARIA [None]
  - VISION BLURRED [None]
  - VITAMIN B12 INCREASED [None]
  - VOMITING [None]
